FAERS Safety Report 4394841-7 (Version None)
Quarter: 2004Q3

REPORT INFORMATION
  Report Type: 
  Country: None (occurrence: None)
  Receive Date: 20040707
  Receipt Date: 20040623
  Transmission Date: 20050211
  Serious: Yes (Death)
  Sender: FDA-Public Use
  Company Number: 04P-163-0265194-00

PATIENT
  Age: 40 Year
  Sex: Female

DRUGS (1)
  1. MERIDIA [Suspect]
     Dosage: UNK
     Route: 065

REACTIONS (9)
  - ABNORMAL BEHAVIOUR [None]
  - AGITATION [None]
  - ANXIETY [None]
  - COMPLETED SUICIDE [None]
  - DRUG TOXICITY [None]
  - MURDER [None]
  - SEDATION [None]
  - SUICIDAL IDEATION [None]
  - TOXICOLOGIC TEST ABNORMAL [None]
